FAERS Safety Report 14966015 (Version 1)
Quarter: 2018Q2

REPORT INFORMATION
  Report Type: Spontaneous
  Country: US (occurrence: US)
  Receive Date: 20180603
  Receipt Date: 20180603
  Transmission Date: 20180711
  Serious: No
  Sender: FDA-Public Use
  Company Number: US-JNJFOC-20180524093

PATIENT
  Age: 55 Year
  Sex: Female
  Weight: 112.95 kg

DRUGS (4)
  1. VITAMINA B12 [Concomitant]
     Route: 065
  2. SIMPONI [Suspect]
     Active Substance: GOLIMUMAB
     Indication: RHEUMATOID ARTHRITIS
     Dosage: NDC; 5789407002
     Route: 058
  3. HCTZ [Concomitant]
     Active Substance: HYDROCHLOROTHIAZIDE
     Route: 065
  4. CLONIDINE. [Concomitant]
     Active Substance: CLONIDINE
     Route: 065

REACTIONS (3)
  - Pyrexia [Unknown]
  - Cough [Unknown]
  - Abdominal discomfort [Unknown]

NARRATIVE: CASE EVENT DATE: 20180421
